FAERS Safety Report 23240074 (Version 7)
Quarter: 2025Q1

REPORT INFORMATION
  Report Type: Spontaneous
  Country: US (occurrence: US)
  Receive Date: 20231129
  Receipt Date: 20250213
  Transmission Date: 20250409
  Serious: Yes (Other)
  Sender: PFIZER
  Company Number: US-PFIZER INC-202200809703

PATIENT
  Age: 72 Year
  Sex: Female
  Weight: 60.5 kg

DRUGS (9)
  1. IBRANCE [Suspect]
     Active Substance: PALBOCICLIB
     Indication: Breast cancer metastatic
     Route: 048
     Dates: start: 20201107
  2. IBRANCE [Suspect]
     Active Substance: PALBOCICLIB
     Indication: Breast cancer female
     Dates: start: 20220330
  3. IBRANCE [Suspect]
     Active Substance: PALBOCICLIB
     Route: 048
  4. ABEMACICLIB [Concomitant]
     Active Substance: ABEMACICLIB
     Dates: start: 20220214
  5. DENOSUMAB [Concomitant]
     Active Substance: DENOSUMAB
     Dates: start: 20210204
  6. FASLODEX [Concomitant]
     Active Substance: FULVESTRANT
     Dates: start: 20210204
  7. FULVESTRANT [Concomitant]
     Active Substance: FULVESTRANT
     Dates: start: 20210204
  8. LETROZOLE [Concomitant]
     Active Substance: LETROZOLE
     Dates: start: 20201107
  9. LOMOTIL [Concomitant]
     Active Substance: ATROPINE SULFATE\DIPHENOXYLATE HYDROCHLORIDE
     Indication: Diarrhoea
     Route: 048

REACTIONS (2)
  - Neutropenia [Unknown]
  - Neoplasm progression [Unknown]
